FAERS Safety Report 24001107 (Version 2)
Quarter: 2024Q3

REPORT INFORMATION
  Report Type: Spontaneous
  Country: BR (occurrence: BR)
  Receive Date: 20240621
  Receipt Date: 20240711
  Transmission Date: 20241017
  Serious: No
  Sender: UCB
  Company Number: BR-UCBSA-2024031391

PATIENT
  Sex: Male

DRUGS (1)
  1. KEPPRA XR [Suspect]
     Active Substance: LEVETIRACETAM
     Indication: Epilepsy
     Dosage: 500 MILLIGRAM, 2X/DAY (BID) TABLET IN THE MORNING AND ONE TABLET AT NIGHT
     Dates: start: 202404

REACTIONS (1)
  - No adverse event [Unknown]
